FAERS Safety Report 14241808 (Version 2)
Quarter: 2018Q1

REPORT INFORMATION
  Report Type: Spontaneous
  Country: US (occurrence: US)
  Receive Date: 20171201
  Receipt Date: 20180105
  Transmission Date: 20180508
  Serious: Yes (Other)
  Sender: FDA-Public Use
  Company Number: US-009507513-1711USA007927

PATIENT
  Sex: Female
  Weight: 68 kg

DRUGS (1)
  1. NEXPLANON [Suspect]
     Active Substance: ETONOGESTREL
     Dosage: ROD
     Route: 059
     Dates: start: 2015

REACTIONS (4)
  - Device dislocation [Not Recovered/Not Resolved]
  - Complication associated with device [Recovered/Resolved]
  - Complication of device removal [Unknown]
  - No adverse event [Unknown]

NARRATIVE: CASE EVENT DATE: 2015
